FAERS Safety Report 5150692-7 (Version None)
Quarter: 2006Q4

REPORT INFORMATION
  Report Type: 
  Country: None (occurrence: None)
  Receive Date: 20061114
  Receipt Date: 20061103
  Transmission Date: 20070319
  Serious: Yes (Other)
  Sender: FDA-Public Use
  Company Number: DE-PURDUE-DEU_2006_0002619

PATIENT
  Age: 27 Year
  Sex: Female

DRUGS (1)
  1. TARGIN 10/5 MG RETARDTABLETTEN [Suspect]
     Indication: DRUG USE FOR UNKNOWN INDICATION
     Dosage: 10 MG, TWICE
     Route: 048
     Dates: start: 20061030, end: 20061101

REACTIONS (2)
  - FALL [None]
  - MUSCULAR WEAKNESS [None]
